FAERS Safety Report 9947722 (Version 1)
Quarter: 2014Q1

REPORT INFORMATION
  Report Type: Report from Study
  Country: US (occurrence: US)
  Receive Date: 20140303
  Receipt Date: 20140303
  Transmission Date: 20141002
  Serious: No
  Sender: FDA-Public Use
  Company Number: US-ABBVIE-13P-163-1058944-00

PATIENT
  Age: 58 Year
  Sex: Female

DRUGS (11)
  1. HUMIRA [Suspect]
     Indication: RHEUMATOID ARTHRITIS
     Dates: start: 201301
  2. ASPIRIN [Concomitant]
     Indication: PRODUCT USED FOR UNKNOWN INDICATION
     Dosage: 325 MG DAILY
  3. LISINOPRIL [Concomitant]
     Indication: HYPERTENSION
     Dosage: 20 MG DAILY
  4. CYMBALTA [Concomitant]
     Indication: FIBROMYALGIA
     Dosage: 60 MG DAILY
  5. LEFLUNOMIDE [Concomitant]
     Indication: RHEUMATOID ARTHRITIS
     Dosage: 20 MG DAILY
  6. VERAPAMIL [Concomitant]
     Indication: HYPERTENSION
     Dosage: 120 MG DAILY
  7. FLEXERIL [Concomitant]
     Indication: PRODUCT USED FOR UNKNOWN INDICATION
     Dosage: 10 MG DAILY
  8. OMEPRAZOLE [Concomitant]
     Indication: GASTROOESOPHAGEAL REFLUX DISEASE
  9. NAPROXEN [Concomitant]
     Indication: PAIN
     Dosage: 220MG X 2 TWICE A DAY = 880MG
  10. FOLIC ACID [Concomitant]
     Indication: PRODUCT USED FOR UNKNOWN INDICATION
     Dosage: 800 MG DAILY
  11. TRAMADOL [Concomitant]
     Indication: PAIN
     Dosage: 50 MG AS REQUIRED

REACTIONS (5)
  - Eye pruritus [Not Recovered/Not Resolved]
  - Pain [Not Recovered/Not Resolved]
  - Cough [Not Recovered/Not Resolved]
  - Sinus disorder [Not Recovered/Not Resolved]
  - Staphylococcal infection [Not Recovered/Not Resolved]
